FAERS Safety Report 22987686 (Version 2)
Quarter: 2024Q1

REPORT INFORMATION
  Report Type: Report from Study
  Country: JP (occurrence: JP)
  Receive Date: 20230926
  Receipt Date: 20240102
  Transmission Date: 20240409
  Serious: Yes (Other)
  Sender: FDA-Public Use
  Company Number: JP-OTSUKA-2023_024795

PATIENT
  Age: 55 Year
  Sex: Male
  Weight: 90 kg

DRUGS (8)
  1. TOLVAPTAN [Suspect]
     Active Substance: TOLVAPTAN
     Indication: Inappropriate antidiuretic hormone secretion
     Dosage: 7.5 MG/DAY, QD (MORNING), DAILY DOSING
     Route: 048
     Dates: start: 20220826, end: 20220826
  2. TOLVAPTAN [Suspect]
     Active Substance: TOLVAPTAN
     Indication: Hyponatraemia
  3. FLORINEF ACETATE [Concomitant]
     Active Substance: FLUDROCORTISONE ACETATE
     Indication: Inappropriate antidiuretic hormone secretion
     Dosage: UNK
     Route: 048
     Dates: start: 20220826, end: 20220826
  4. FLORINEF ACETATE [Concomitant]
     Active Substance: FLUDROCORTISONE ACETATE
     Indication: Hyponatraemia
  5. MANNITOL [Concomitant]
     Active Substance: MANNITOL
     Indication: Inappropriate antidiuretic hormone secretion
     Dosage: UNK
     Route: 050
     Dates: start: 20220826, end: 20220830
  6. MANNITOL [Concomitant]
     Active Substance: MANNITOL
     Indication: Hyponatraemia
  7. SODIUM CHLORIDE [Concomitant]
     Active Substance: SODIUM CHLORIDE
     Indication: Inappropriate antidiuretic hormone secretion
     Dosage: 400 ML/DAY
     Route: 065
     Dates: start: 20220825, end: 20220826
  8. SODIUM CHLORIDE [Concomitant]
     Active Substance: SODIUM CHLORIDE
     Indication: Hyponatraemia

REACTIONS (1)
  - Rapid correction of hyponatraemia [Unknown]

NARRATIVE: CASE EVENT DATE: 20220826
